FAERS Safety Report 5182607-X (Version None)
Quarter: 2006Q4

REPORT INFORMATION
  Report Type: 
  Country: None (occurrence: None)
  Receive Date: 20061212
  Receipt Date: 20061201
  Transmission Date: 20070319
  Serious: Yes (Other)
  Sender: FDA-Public Use
  Company Number: 233499

PATIENT
  Sex: Female
  Weight: 128 kg

DRUGS (9)
  1. LUCENTIS [Suspect]
     Indication: MACULAR DEGENERATION
     Dosage: SINGLE, INTRAVITREAL
     Dates: start: 20061111, end: 20061111
  2. NORVASC [Concomitant]
  3. AVALIDE [Concomitant]
  4. VYTORIN [Concomitant]
  5. OMACOR (DOCOSAHEXAENOIC ACID, EICOSAPENTAENOIC ACID) [Concomitant]
  6. MAXIDE (HYDROCHLOROTHIAZIDE, TRIAMTERENE) [Concomitant]
  7. MACROBID [Concomitant]
  8. RETINAVITES (ASCORBIC ACID, BETA CAROTENE, VITAMIN E, ZINC OXIDE) [Concomitant]
  9. AVASTIN [Concomitant]

REACTIONS (2)
  - RETINAL HAEMORRHAGE [None]
  - SCAR [None]
